FAERS Safety Report 8406657-2 (Version None)
Quarter: 2012Q2

REPORT INFORMATION
  Report Type: 
  Country: None (occurrence: None)
  Receive Date: 20120604
  Receipt Date: 20120525
  Transmission Date: 20120825
  Serious: Yes (Hospitalization, Other)
  Sender: FDA-Public Use
  Company Number: DE-ASTELLAS-2012US001768

PATIENT
  Sex: Male
  Weight: 84 kg

DRUGS (19)
  1. ERLOTINIB HYDROCHLORIDE [Suspect]
     Indication: HEPATIC NEOPLASM MALIGNANT
     Dosage: UNK
     Route: 048
     Dates: start: 20120116
  2. DIPYRONE TAB [Concomitant]
     Indication: PALMAR-PLANTAR ERYTHRODYSAESTHESIA SYNDROME
     Dosage: UNK
     Route: 065
     Dates: start: 20100621
  3. MAGNESIUM [Concomitant]
     Indication: MUSCLE SPASMS
     Dosage: UNK
     Route: 065
     Dates: start: 20110517
  4. LIMPTAR N [Concomitant]
     Indication: MUSCLE SPASMS
     Dosage: UNK
     Route: 065
     Dates: start: 20110824
  5. UNCODEABLE UNKNOWN MANUFACTURER [Concomitant]
     Indication: PRODUCT USED FOR UNKNOWN INDICATION
     Dosage: 150212 UNK, UNK
     Route: 065
     Dates: start: 20120315
  6. SORAFENIB [Suspect]
     Dosage: 400 MG, QOD
     Route: 048
     Dates: start: 20120227, end: 20120316
  7. BEROTEC [Concomitant]
     Indication: CHRONIC OBSTRUCTIVE PULMONARY DISEASE
     Dosage: UNK
     Route: 065
     Dates: start: 20080701
  8. FLORADIX KRAEUTERBLUT MIT EISEN [Concomitant]
     Indication: NORMOCHROMIC NORMOCYTIC ANAEMIA
     Dosage: UNK
     Route: 065
     Dates: start: 20120215, end: 20120215
  9. ERLOTINIB HYDROCHLORIDE [Suspect]
     Dosage: 50 MG, UID/QD
     Route: 048
     Dates: start: 20120227, end: 20120326
  10. SPIRONOLACTONE [Concomitant]
     Indication: ASCITES
     Dosage: UNK
     Route: 065
     Dates: start: 20110618
  11. ENTOCORT EC [Concomitant]
     Indication: ENTERITIS
     Dosage: UNK
     Route: 065
     Dates: start: 20110423
  12. SPIRIVA [Concomitant]
     Indication: CHRONIC OBSTRUCTIVE PULMONARY DISEASE
     Dosage: UNK
     Route: 065
     Dates: start: 20080701
  13. TEMAZEP [Concomitant]
     Indication: INSOMNIA
     Dosage: UNK
     Route: 065
     Dates: start: 20110530
  14. SORAFENIB [Suspect]
     Indication: HEPATIC NEOPLASM MALIGNANT
     Dosage: 400 MG, QOD
     Route: 048
     Dates: start: 20120116
  15. FUROSEMIDE [Concomitant]
     Indication: ASCITES
  16. ACTRAPID [Concomitant]
     Indication: DIABETES MELLITUS
     Dosage: UNK
     Route: 065
     Dates: start: 20100301
  17. PROMETHAZINE HCL [Concomitant]
     Indication: ANXIETY DISORDER
     Dosage: UNK
     Route: 065
     Dates: start: 20110907
  18. TINCTURA THEBAICA [Concomitant]
     Indication: DIARRHOEA
     Dosage: UNK
     Route: 065
     Dates: start: 20111121
  19. FUROSEMIDE [Concomitant]
     Indication: HYPERTENSION
     Dosage: UNK
     Route: 065
     Dates: start: 20110115

REACTIONS (10)
  - GASTROOESOPHAGEAL REFLUX DISEASE [None]
  - MELAENA [None]
  - OFF LABEL USE [None]
  - PLATELET COUNT DECREASED [None]
  - IRON DEFICIENCY ANAEMIA [None]
  - OESOPHAGEAL VARICES HAEMORRHAGE [None]
  - GASTRITIS EROSIVE [None]
  - WHITE BLOOD CELL COUNT DECREASED [None]
  - HAEMORRHAGIC ANAEMIA [None]
  - METASTASES TO ABDOMINAL CAVITY [None]
